FAERS Safety Report 9147892 (Version 2)
Quarter: 2013Q2

REPORT INFORMATION
  Report Type: Spontaneous
  Country: US (occurrence: US)
  Receive Date: 20130307
  Receipt Date: 20130404
  Transmission Date: 20140414
  Serious: Yes (Hospitalization)
  Sender: FDA-Public Use
  Company Number: US-B.I. PHARMACEUTICALS,INC./RIDGEFIELD-2013-BI-05781BP

PATIENT
  Age: 87 Year
  Sex: Male
  Weight: 82 kg

DRUGS (16)
  1. SPIRIVA [Suspect]
     Indication: CHRONIC OBSTRUCTIVE PULMONARY DISEASE
     Dosage: 18 MCG
     Route: 055
     Dates: start: 2011
  2. ASPIRIN [Concomitant]
     Dosage: 81 MG
     Route: 048
  3. OMEPRAZOLE [Concomitant]
     Dosage: 20 MG
     Route: 048
  4. SIMVASTATIN [Concomitant]
     Dosage: 20 MG
     Route: 048
  5. CLONIDINE [Concomitant]
     Dosage: 0.2 MG
     Route: 048
  6. DILTIAZAM [Concomitant]
     Dosage: 240 MG
     Route: 048
  7. MUCINEX [Concomitant]
     Dosage: 1200 MG
     Route: 048
  8. NORVASC [Concomitant]
     Dosage: 10 MG
     Route: 048
  9. ALLOPURINOL [Concomitant]
     Indication: GOUT
     Dosage: 200 MG
     Route: 048
  10. RENAL CAP [Concomitant]
     Route: 048
  11. DEMODEX [Concomitant]
     Dosage: 100 MG
     Route: 048
  12. METOLAZONE [Concomitant]
     Dosage: 5 MG
     Route: 048
  13. MAG OX [Concomitant]
     Dosage: 1200 MG
     Route: 048
  14. LANTUS INSULIN [Concomitant]
     Indication: DIABETES MELLITUS
     Dosage: 20 U
     Route: 058
  15. NOVOLOG INSULIN [Concomitant]
     Dosage: 24 U
     Route: 058
  16. NITORGLYCERIN PATCH [Concomitant]
     Route: 061

REACTIONS (1)
  - Myocardial infarction [Recovered/Resolved]
